FAERS Safety Report 6473355-4 (Version None)
Quarter: 2009Q4

REPORT INFORMATION
  Report Type: 
  Country: None (occurrence: None)
  Receive Date: 20091204
  Receipt Date: 20081010
  Transmission Date: 20100525
  Serious: Yes (Hospitalization, Other)
  Sender: FDA-Public Use
  Company Number: US-ELI_LILLY_AND_COMPANY-US200807006165

PATIENT
  Sex: Female
  Weight: 75.737 kg

DRUGS (14)
  1. FORTEO [Suspect]
     Indication: OSTEOPOROSIS
     Dosage: 20 UG, DAILY (1/D)
     Dates: start: 20070701, end: 20080501
  2. FORTEO [Suspect]
  3. PREDNISONE [Concomitant]
  4. PRILOSEC [Concomitant]
  5. TRICOR [Concomitant]
  6. HUMIRA [Concomitant]
  7. ASPIRIN [Concomitant]
  8. VITAMINS [Concomitant]
  9. CALCIUM CARBONATE [Concomitant]
  10. ARAVA [Concomitant]
  11. DITROPAN [Concomitant]
  12. MOBIC [Concomitant]
  13. ERGOCALCIFEROL [Concomitant]
  14. MIDRIN [Concomitant]

REACTIONS (2)
  - COMPRESSION FRACTURE [None]
  - INJURY [None]
